FAERS Safety Report 5632559-0 (Version None)
Quarter: 2008Q1

REPORT INFORMATION
  Report Type: 
  Country: None (occurrence: None)
  Receive Date: 20080220
  Receipt Date: 20080211
  Transmission Date: 20080703
  Serious: Yes (Hospitalization, Other)
  Sender: FDA-Public Use
  Company Number: US-PFIZER INC-2005008750

PATIENT
  Sex: Male
  Weight: 49.9 kg

DRUGS (6)
  1. DILANTIN [Suspect]
     Route: 048
  2. DILANTIN [Suspect]
  3. NICOTROL [Suspect]
     Indication: EX-SMOKER
  4. DILANTIN [Suspect]
  5. DILANTIN [Suspect]
  6. PHENOBARBITAL TAB [Concomitant]

REACTIONS (8)
  - ABASIA [None]
  - CONVULSION [None]
  - DIZZINESS [None]
  - DRUG INTOLERANCE [None]
  - FALL [None]
  - FEELING DRUNK [None]
  - NEOPLASM [None]
  - RIB FRACTURE [None]
